FAERS Safety Report 12976002 (Version 1)
Quarter: 2016Q4

REPORT INFORMATION
  Report Type: Spontaneous
  Country: NO (occurrence: NO)
  Receive Date: 20161126
  Receipt Date: 20161126
  Transmission Date: 20170207
  Serious: Yes (Hospitalization)
  Sender: FDA-Public Use
  Company Number: NO-ACCORD-045889

PATIENT
  Age: 81 Year
  Sex: Female

DRUGS (1)
  1. GEMCITABINE/GEMCITABINE HYDROCHLORIDE [Suspect]
     Active Substance: GEMCITABINE\GEMCITABINE HYDROCHLORIDE
     Indication: CHOLANGIOCARCINOMA
     Dosage: THREE TREATMENTS, ADMINISTERED 17-OCT-2016, 24-OCT-2016 AND 31-OCT-2016
     Dates: start: 20161031, end: 20161031

REACTIONS (2)
  - Off label use [Unknown]
  - Athetosis [Recovering/Resolving]

NARRATIVE: CASE EVENT DATE: 20161031
